FAERS Safety Report 12695268 (Version 1)
Quarter: 2016Q3

REPORT INFORMATION
  Report Type: Spontaneous
  Country: ES (occurrence: ES)
  Receive Date: 20160829
  Receipt Date: 20160829
  Transmission Date: 20161109
  Serious: Yes (Other)
  Sender: FDA-Public Use
  Company Number: ES-GILEAD-2016-0201396

PATIENT
  Sex: Male

DRUGS (8)
  1. ELOCOM [Concomitant]
     Active Substance: MOMETASONE FUROATE
  2. SIMVASTATINE [Concomitant]
     Active Substance: SIMVASTATIN
  3. SOTAPOR                            /00371501/ [Concomitant]
  4. CIPROFLOXACIN. [Concomitant]
     Active Substance: CIPROFLOXACIN
  5. DIAZEPAM. [Concomitant]
     Active Substance: DIAZEPAM
  6. HARVONI [Suspect]
     Active Substance: LEDIPASVIR\SOFOSBUVIR
     Indication: HEPATITIS C VIRUS TEST POSITIVE
     Dosage: UNK
     Route: 065
  7. ESCITALOPRAM [Concomitant]
     Active Substance: ESCITALOPRAM OXALATE
  8. OMEPRAZOLE. [Concomitant]
     Active Substance: OMEPRAZOLE

REACTIONS (3)
  - Viral mutation identified [Unknown]
  - Drug ineffective [Unknown]
  - Hepatitis C [Unknown]
